FAERS Safety Report 13837475 (Version 1)
Quarter: 2017Q3

REPORT INFORMATION
  Report Type: Spontaneous
  Country: US (occurrence: US)
  Receive Date: 20170804
  Receipt Date: 20170804
  Transmission Date: 20171127
  Serious: No
  Sender: FDA-Public Use
  Company Number: US-ROCHE-1020736

PATIENT
  Sex: Female

DRUGS (1)
  1. BONVIVA [Suspect]
     Active Substance: IBANDRONATE SODIUM
     Indication: PRODUCT USED FOR UNKNOWN INDICATION
     Route: 065

REACTIONS (6)
  - Haemoptysis [Unknown]
  - Renal disorder [Unknown]
  - Hypoaesthesia [Unknown]
  - Chest pain [Unknown]
  - Oesophageal mucosa erythema [Unknown]
  - Tinnitus [Unknown]
